FAERS Safety Report 5767152-2 (Version None)
Quarter: 2008Q2

REPORT INFORMATION
  Report Type: 
  Country: None (occurrence: None)
  Receive Date: 20080609
  Receipt Date: 20080527
  Transmission Date: 20081010
  Serious: Yes (Other)
  Sender: FDA-Public Use
  Company Number: 2008AP001174

PATIENT
  Age: 39 Year
  Sex: Male

DRUGS (7)
  1. PAROXETINE HCL [Suspect]
     Indication: ANXIETY
     Dosage: 40 MG; QD; PO; 10 MG; QD; PO
     Route: 048
     Dates: start: 20071201
  2. PAROXETINE HCL [Suspect]
     Indication: STRESS
     Dosage: 40 MG; QD; PO; 10 MG; QD; PO
     Route: 048
     Dates: start: 20071201
  3. PAROXETINE HCL [Suspect]
     Indication: ANXIETY
     Dosage: 40 MG; QD; PO; 10 MG; QD; PO
     Route: 048
     Dates: start: 20080501
  4. PAROXETINE HCL [Suspect]
     Indication: STRESS
     Dosage: 40 MG; QD; PO; 10 MG; QD; PO
     Route: 048
     Dates: start: 20080501
  5. CLONAZEPAM [Concomitant]
  6. PAROXETINE HCL [Concomitant]
  7. PAROXETINE HCL [Concomitant]

REACTIONS (15)
  - ALOPECIA [None]
  - CONDITION AGGRAVATED [None]
  - DISTURBANCE IN ATTENTION [None]
  - DYSARTHRIA [None]
  - FEELING ABNORMAL [None]
  - GUTTATE PSORIASIS [None]
  - HEADACHE [None]
  - HYPERSENSITIVITY [None]
  - INCORRECT DOSE ADMINISTERED [None]
  - NAUSEA [None]
  - PANIC ATTACK [None]
  - PARAESTHESIA [None]
  - RASH [None]
  - TREATMENT NONCOMPLIANCE [None]
  - VERTIGO [None]
